FAERS Safety Report 14196916 (Version 1)
Quarter: 2017Q4

REPORT INFORMATION
  Report Type: Spontaneous
  Country: US (occurrence: US)
  Receive Date: 20171116
  Receipt Date: 20171116
  Transmission Date: 20180321
  Serious: No
  Sender: FDA-Public Use
  Company Number: US-GLAXOSMITHKLINE-US2017GSK175510

PATIENT
  Sex: Female

DRUGS (2)
  1. RETROVIR [Suspect]
     Active Substance: ZIDOVUDINE
     Indication: PROPHYLAXIS AGAINST HIV INFECTION
     Dosage: 100 MG, UNK
     Dates: start: 20171110
  2. EPIVIR [Suspect]
     Active Substance: LAMIVUDINE
     Indication: PROPHYLAXIS AGAINST HIV INFECTION
     Dosage: 300 MG, UNK
     Dates: start: 20171110

REACTIONS (3)
  - Off label use [Unknown]
  - Insurance issue [None]
  - Product use in unapproved indication [Unknown]
